FAERS Safety Report 15941039 (Version 1)
Quarter: 2019Q1

REPORT INFORMATION
  Report Type: Spontaneous
  Country: US (occurrence: US)
  Receive Date: 20190208
  Receipt Date: 20190208
  Transmission Date: 20190417
  Serious: Yes (Other)
  Sender: FDA-Public Use
  Company Number: US-ALLERGAN-1905442US

PATIENT

DRUGS (9)
  1. IRON DEXTRAN UNK [Suspect]
     Active Substance: IRON DEXTRAN
     Indication: PRODUCT USED FOR UNKNOWN INDICATION
     Route: 065
  2. LISINOPRIL. [Suspect]
     Active Substance: LISINOPRIL
     Indication: PRODUCT USED FOR UNKNOWN INDICATION
     Dosage: UNK
     Route: 065
  3. LORATADINE. [Suspect]
     Active Substance: LORATADINE
     Indication: PRODUCT USED FOR UNKNOWN INDICATION
     Route: 065
  4. PENICILLIN NOS [Suspect]
     Active Substance: PENICILLIN
     Indication: PRODUCT USED FOR UNKNOWN INDICATION
     Route: 065
  5. PRAVACHOL [Suspect]
     Active Substance: PRAVASTATIN SODIUM
     Indication: PRODUCT USED FOR UNKNOWN INDICATION
     Route: 065
  6. SIMVASTATIN. [Suspect]
     Active Substance: SIMVASTATIN
     Indication: PRODUCT USED FOR UNKNOWN INDICATION
     Route: 065
  7. QUINIDINE [Suspect]
     Active Substance: QUINIDINE
     Indication: PRODUCT USED FOR UNKNOWN INDICATION
     Dosage: UNK
     Route: 065
  8. CAPTOPRIL. [Suspect]
     Active Substance: CAPTOPRIL
     Indication: PRODUCT USED FOR UNKNOWN INDICATION
     Route: 065
  9. HYDRALAZINE [Suspect]
     Active Substance: HYDRALAZINE HYDROCHLORIDE
     Indication: PRODUCT USED FOR UNKNOWN INDICATION
     Route: 065

REACTIONS (16)
  - Dyspnoea [Unknown]
  - Rash [Unknown]
  - Torsade de pointes [Unknown]
  - Drug hypersensitivity [Unknown]
  - Atrial fibrillation [Unknown]
  - Cough [Unknown]
  - Arrhythmia [Unknown]
  - Nausea [Unknown]
  - Electrocardiogram abnormal [Unknown]
  - Musculoskeletal pain [Unknown]
  - Headache [Unknown]
  - Arthralgia [Unknown]
  - Vertigo [Unknown]
  - Chest pain [Unknown]
  - Diarrhoea [Unknown]
  - Syncope [Unknown]

NARRATIVE: CASE EVENT DATE: 20070806
